FAERS Safety Report 26047390 (Version 2)
Quarter: 2025Q4

REPORT INFORMATION
  Report Type: Spontaneous
  Country: CN (occurrence: CN)
  Receive Date: 20251114
  Receipt Date: 20251205
  Transmission Date: 20260117
  Serious: Yes (Other)
  Sender: PFIZER
  Company Number: CN-PFIZER INC-PV202500118336

PATIENT
  Age: 41 Year
  Sex: Male

DRUGS (3)
  1. BENEFIX [Suspect]
     Active Substance: COAGULATION FACTOR IX RECOMBINANT HUMAN\ISOPROPYL ALCOHOL
     Indication: Factor IX deficiency
     Dosage: 3000 IU, 2X/WEEK
     Route: 042
     Dates: start: 2022
  2. BENEFIX [Suspect]
     Active Substance: COAGULATION FACTOR IX RECOMBINANT HUMAN\ISOPROPYL ALCOHOL
     Dosage: 3000 IU, 1X/DAY
     Route: 042
  3. BENEFIX [Suspect]
     Active Substance: COAGULATION FACTOR IX RECOMBINANT HUMAN\ISOPROPYL ALCOHOL
     Dosage: 3000 IU, 1X/DAY
     Route: 040

REACTIONS (7)
  - Haemarthrosis [Unknown]
  - Haemorrhage [Unknown]
  - Ecchymosis [Unknown]
  - Arthralgia [Unknown]
  - Joint deformity [Unknown]
  - Movement disorder [Unknown]
  - Joint swelling [Unknown]

NARRATIVE: CASE EVENT DATE: 20250926
